FAERS Safety Report 4792699-5 (Version None)
Quarter: 2005Q4

REPORT INFORMATION
  Report Type: 
  Country: None (occurrence: None)
  Receive Date: 20051010
  Receipt Date: 20051004
  Transmission Date: 20060501
  Serious: Yes (Hospitalization)
  Sender: FDA-Public Use
  Company Number: 200518880GDDC

PATIENT
  Sex: Male

DRUGS (3)
  1. METRONIDAZOLE [Suspect]
     Route: 042
     Dates: start: 20050808, end: 20050907
  2. VANCOMYCIN [Suspect]
     Route: 042
     Dates: start: 20050727, end: 20050907
  3. CIPROFLOXACIN [Suspect]
     Route: 042
     Dates: start: 20050816, end: 20050907

REACTIONS (1)
  - NEUTROPENIA [None]
